FAERS Safety Report 5023215-0 (Version None)
Quarter: 2006Q2

REPORT INFORMATION
  Report Type: 
  Country: None (occurrence: None)
  Receive Date: 20060606
  Receipt Date: 20060523
  Transmission Date: 20061013
  Serious: Yes (Hospitalization, Other)
  Sender: FDA-Public Use
  Company Number: 105292

PATIENT
  Age: 11 Year
  Sex: Male

DRUGS (3)
  1. DAIVOBET [Suspect]
     Indication: PSORIASIS
     Dosage: 1 APPLICATION TO
     Route: 061
     Dates: start: 20060120, end: 20060201
  2. NERISALIC                   (NERISALIC) [Concomitant]
  3. SAUGELLA [Concomitant]

REACTIONS (7)
  - ARTHRALGIA [None]
  - DRUG ADMINISTRATION ERROR [None]
  - OVERDOSE [None]
  - PAIN OF SKIN [None]
  - PUSTULAR PSORIASIS [None]
  - PYREXIA [None]
  - REBOUND EFFECT [None]
